FAERS Safety Report 6447421-3 (Version None)
Quarter: 2009Q4

REPORT INFORMATION
  Report Type: 
  Country: None (occurrence: None)
  Receive Date: 20091119
  Receipt Date: 20091110
  Transmission Date: 20100525
  Serious: Yes (Death)
  Sender: FDA-Public Use
  Company Number: US-PFIZER INC-2009285717

PATIENT
  Sex: Male
  Weight: 81.179 kg

DRUGS (2)
  1. CAMPTOSAR [Suspect]
     Indication: OLIGODENDROGLIOMA
     Dosage: 640 MG (340 MG/M2) EVERY TWO WEEKS
     Route: 042
     Dates: start: 20090305, end: 20090918
  2. AVASTIN [Concomitant]
     Indication: OLIGODENDROGLIOMA
     Dosage: 10 MG/KG (750 MG) EVERY TWO WEEKS
     Dates: start: 20090305, end: 20090918

REACTIONS (2)
  - DISEASE PROGRESSION [None]
  - OLIGODENDROGLIOMA [None]
